FAERS Safety Report 22265096 (Version 2)
Quarter: 2023Q2

REPORT INFORMATION
  Report Type: Spontaneous
  Country: US (occurrence: US)
  Receive Date: 20230428
  Receipt Date: 20230525
  Transmission Date: 20230721
  Serious: No
  Sender: FDA-Public Use
  Company Number: US-PFIZER INC-202300168809

PATIENT
  Age: 72 Year
  Sex: Female

DRUGS (2)
  1. MENEST [Suspect]
     Active Substance: ESTROGENS, ESTERIFIED
     Indication: Hormone replacement therapy
     Dosage: 0.625 MG
     Dates: start: 2000, end: 20230215
  2. MEDROXYPROGESTERONE [Concomitant]
     Active Substance: MEDROXYPROGESTERONE
     Dosage: UNK
     Dates: start: 2000

REACTIONS (3)
  - Menstruation irregular [Unknown]
  - Weight increased [Unknown]
  - Abdominal distension [Unknown]
